FAERS Safety Report 4598185-X (Version None)
Quarter: 2005Q1

REPORT INFORMATION
  Report Type: 
  Country: None (occurrence: None)
  Receive Date: 20050302
  Receipt Date: 20050223
  Transmission Date: 20050727
  Serious: Yes (Life-Threatening)
  Sender: FDA-Public Use
  Company Number: 2005SE01120

PATIENT
  Age: 13 Year
  Sex: Female

DRUGS (2)
  1. SEROQUEL [Suspect]
     Indication: PSYCHOTIC DISORDER
     Dosage: 25 MG DAILY PO
     Route: 048
     Dates: start: 20040601
  2. SEROQUEL [Suspect]
     Indication: PSYCHOTIC DISORDER
     Dosage: 225 MG DAILY PO
     Route: 048
     Dates: start: 20050201

REACTIONS (2)
  - CEREBRAL HAEMORRHAGE [None]
  - TACHYCARDIA [None]
